FAERS Safety Report 15562310 (Version 7)
Quarter: 2019Q3

REPORT INFORMATION
  Report Type: Report from Study
  Country: SE (occurrence: SE)
  Receive Date: 20181029
  Receipt Date: 20190902
  Transmission Date: 20191004
  Serious: Yes (Hospitalization)
  Sender: FDA-Public Use
  Company Number: SE-ROCHE-2204546

PATIENT
  Age: 65 Year
  Sex: Female

DRUGS (24)
  1. ONDANSETRON [Concomitant]
     Active Substance: ONDANSETRON
     Route: 065
     Dates: start: 20181106, end: 20181107
  2. ATEZOLIZUMAB. [Suspect]
     Active Substance: ATEZOLIZUMAB
     Indication: OVARIAN CANCER
     Dosage: DATE OF MOST RECENT DOSE OF ATEZOLIZUMAB WAS ADMINISTERED ON 11/OCT/2018
     Route: 042
     Dates: start: 20181011
  3. BETAMETASON [Concomitant]
     Route: 048
     Dates: start: 20181108, end: 20181109
  4. RANITIDIN [Concomitant]
     Active Substance: RANITIDINE HYDROCHLORIDE
     Indication: PREMEDICATION
     Route: 065
     Dates: start: 20181011, end: 20181011
  5. CARBOPLATIN. [Suspect]
     Active Substance: CARBOPLATIN
     Indication: OVARIAN CANCER
     Dosage: CARBOPLATIN AT A DOSE TO ACHIEVE A TARGET AREA UNDER THE CURVE (AUC) OF 6 MG/ML*MIN ON DAY 1 OF EACH
     Route: 042
     Dates: start: 20181011
  6. BETAMETASON [Concomitant]
     Route: 048
     Dates: start: 20181012, end: 20181012
  7. KLEMASTIN [Concomitant]
     Route: 065
     Dates: start: 20181106, end: 20181106
  8. RANITIDIN [Concomitant]
     Active Substance: RANITIDINE HYDROCHLORIDE
     Route: 065
     Dates: start: 20181106, end: 20181106
  9. PACLITAXEL. [Suspect]
     Active Substance: PACLITAXEL
     Indication: FALLOPIAN TUBE CANCER
  10. KLEMASTIN [Concomitant]
     Indication: PREMEDICATION
     Route: 065
     Dates: start: 20181011, end: 20181011
  11. CARBOPLATIN. [Suspect]
     Active Substance: CARBOPLATIN
     Indication: FALLOPIAN TUBE CANCER
  12. OMEPRAZOL [OMEPRAZOLE] [Concomitant]
     Active Substance: OMEPRAZOLE
     Indication: GASTROOESOPHAGEAL REFLUX DISEASE
     Route: 042
     Dates: start: 20181106
  13. OMEPRAZOL [OMEPRAZOLE] [Concomitant]
     Active Substance: OMEPRAZOLE
     Route: 065
     Dates: start: 20180813
  14. APREPITANT. [Concomitant]
     Active Substance: APREPITANT
     Indication: PREMEDICATION
     Route: 065
     Dates: start: 20181011, end: 20181013
  15. BETAMETASON [Concomitant]
     Indication: PREMEDICATION
     Route: 048
     Dates: start: 20181011, end: 20181011
  16. BETAMETASON [Concomitant]
     Route: 048
     Dates: start: 20181013, end: 20181014
  17. BETAMETASON [Concomitant]
     Route: 048
     Dates: start: 20181107, end: 20181107
  18. PACLITAXEL. [Suspect]
     Active Substance: PACLITAXEL
     Indication: OVARIAN CANCER
     Dosage: DATE OF MOST RECENT DOSE OF PACLITAXEL PRIOR TO SAE: 11/OCT/2018 DOSE 323.75 MG
     Route: 042
     Dates: start: 20181011
  19. PACLITAXEL. [Suspect]
     Active Substance: PACLITAXEL
     Indication: PERITONEAL NEOPLASM
  20. APREPITANT. [Concomitant]
     Active Substance: APREPITANT
     Route: 065
     Dates: start: 20181106, end: 20181108
  21. ONDANSETRON [Concomitant]
     Active Substance: ONDANSETRON
     Indication: PREMEDICATION
     Route: 065
     Dates: start: 20181011, end: 20181012
  22. CARBOPLATIN. [Suspect]
     Active Substance: CARBOPLATIN
     Indication: PERITONEAL NEOPLASM
  23. CANDESARTAN. [Concomitant]
     Active Substance: CANDESARTAN
     Indication: HYPERTENSION
     Route: 065
     Dates: start: 20180523
  24. BETAMETASON [Concomitant]
     Route: 048
     Dates: start: 20181106, end: 20181106

REACTIONS (1)
  - Cytokine release syndrome [Recovered/Resolved]

NARRATIVE: CASE EVENT DATE: 20181020
